FAERS Safety Report 21070666 (Version 1)
Quarter: 2022Q3

REPORT INFORMATION
  Report Type: Spontaneous
  Country: JP (occurrence: JP)
  Receive Date: 20220712
  Receipt Date: 20220712
  Transmission Date: 20221027
  Serious: Yes (Other)
  Sender: FDA-Public Use
  Company Number: JP-BAYER-2022A092925

PATIENT
  Age: 73 Year
  Sex: Male

DRUGS (1)
  1. EYLEA [Suspect]
     Active Substance: AFLIBERCEPT
     Indication: Age-related macular degeneration
     Dosage: SCHEDULED TO BE ADMINISTERED 3 TIMES, SOLUTION FOR INJECTION IN PRE-FILLED SYRINGE

REACTIONS (3)
  - Retinal haemorrhage [Unknown]
  - Retinal pigment epithelial tear [Unknown]
  - Visual acuity reduced [Unknown]
